FAERS Safety Report 5996445-9 (Version None)
Quarter: 2008Q4

REPORT INFORMATION
  Report Type: 
  Country: None (occurrence: None)
  Receive Date: 20081212
  Receipt Date: 20081017
  Transmission Date: 20090506
  Serious: No
  Sender: FDA-Public Use
  Company Number: US-ABBOTT-08P-163-0482447-00

PATIENT
  Sex: Female
  Weight: 67.192 kg

DRUGS (2)
  1. HUMIRA [Suspect]
     Indication: PSORIASIS
     Dosage: LOADING DOSE
     Route: 058
     Dates: start: 20081010, end: 20081010
  2. HUMIRA [Suspect]
     Indication: PSORIATIC ARTHROPATHY
     Route: 058
     Dates: start: 20081017

REACTIONS (3)
  - INJECTION SITE EXTRAVASATION [None]
  - PAIN IN EXTREMITY [None]
  - WRONG TECHNIQUE IN DRUG USAGE PROCESS [None]
